FAERS Safety Report 26150498 (Version 1)
Quarter: 2025Q4

REPORT INFORMATION
  Report Type: Spontaneous
  Country: US (occurrence: US)
  Receive Date: 20251212
  Receipt Date: 20251212
  Transmission Date: 20260117
  Serious: No
  Sender: ALCON
  Company Number: US-ALCON LABORATORIES-ALC2025US005959

PATIENT
  Sex: Female

DRUGS (3)
  1. ACOLTREMON [Suspect]
     Active Substance: ACOLTREMON
     Indication: Product used for unknown indication
     Dosage: ONE DROP INTO EACH EYE TWICE DAILY, 10-12 HOURS APART
     Route: 047
     Dates: start: 20251003, end: 20251010
  2. CEVIMELINE [Concomitant]
     Active Substance: CEVIMELINE
     Indication: Product used for unknown indication
     Route: 065
  3. HYDROXYCHLOROQUINE [Concomitant]
     Active Substance: HYDROXYCHLOROQUINE
     Indication: Product used for unknown indication
     Route: 065

REACTIONS (4)
  - Headache [Unknown]
  - Ocular hyperaemia [Unknown]
  - Eye irritation [Unknown]
  - Eye pain [Unknown]
